FAERS Safety Report 5661357-7 (Version None)
Quarter: 2008Q1

REPORT INFORMATION
  Report Type: 
  Country: None (occurrence: None)
  Receive Date: 20080312
  Receipt Date: 20080229
  Transmission Date: 20080703
  Serious: Yes (Hospitalization)
  Sender: FDA-Public Use
  Company Number: FR-AVENTIS-200810602FR

PATIENT
  Age: 86 Year
  Sex: Female

DRUGS (6)
  1. LASILIX                            /00032601/ [Suspect]
     Indication: CARDIAC FAILURE
     Route: 048
     Dates: start: 20080104, end: 20080111
  2. CALCIPARINE [Suspect]
     Indication: THROMBOSIS PROPHYLAXIS
     Route: 058
     Dates: start: 20080103, end: 20080114
  3. TRIATEC                            /00885601/ [Concomitant]
     Indication: DRUG USE FOR UNKNOWN INDICATION
     Route: 048
     Dates: start: 20080110
  4. CARDENSIEL [Concomitant]
     Indication: CARDIAC FAILURE
     Route: 048
     Dates: start: 20080101
  5. AUGMENTIN '125' [Concomitant]
     Indication: PNEUMONITIS
     Route: 048
     Dates: start: 20080104, end: 20080111
  6. KARDEGIC                           /00002703/ [Concomitant]
     Indication: ANGINA PECTORIS
     Route: 048
     Dates: start: 20080104, end: 20080111

REACTIONS (1)
  - HEPARIN-INDUCED THROMBOCYTOPENIA [None]
